FAERS Safety Report 7023843-7 (Version None)
Quarter: 2010Q4

REPORT INFORMATION
  Report Type: 
  Country: None (occurrence: None)
  Receive Date: 20101001
  Receipt Date: 20100923
  Transmission Date: 20110411
  Serious: Yes (Other)
  Sender: FDA-Public Use
  Company Number: IT-GENZYME-CERZ-1001521

PATIENT

DRUGS (1)
  1. CEREZYME [Suspect]
     Indication: GAUCHER'S DISEASE
     Dosage: 50 U/KG, Q4W
     Route: 042

REACTIONS (3)
  - ANAEMIA [None]
  - NON-HODGKIN'S LYMPHOMA [None]
  - PLATELET COUNT DECREASED [None]
